FAERS Safety Report 6735384-2 (Version None)
Quarter: 2010Q2

REPORT INFORMATION
  Report Type: 
  Country: None (occurrence: None)
  Receive Date: 20100521
  Receipt Date: 20100514
  Transmission Date: 20101027
  Serious: Yes (Hospitalization)
  Sender: FDA-Public Use
  Company Number: DE-JNJFOC-20100406712

PATIENT
  Age: 75 Year
  Sex: Female
  Weight: 65 kg

DRUGS (12)
  1. FENTANYL [Suspect]
     Indication: PAIN
     Route: 062
     Dates: start: 20070101, end: 20080719
  2. CLOBAZAM [Interacting]
     Indication: EPILEPSY
     Route: 048
     Dates: end: 20080907
  3. VALPROAT [Interacting]
     Indication: EPILEPSY
     Route: 048
     Dates: start: 20080401
  4. VALPROAT [Interacting]
     Route: 048
     Dates: start: 20080401
  5. VALPROAT [Interacting]
     Route: 048
     Dates: start: 20080401
  6. OMEPRAZOLE [Concomitant]
     Indication: PROPHYLAXIS AGAINST GASTROINTESTINAL ULCER
     Route: 048
     Dates: start: 20040101
  7. FOSAMAX [Concomitant]
     Indication: OSTEOPOROSIS
     Route: 048
     Dates: start: 20020101
  8. CALCIUM [Concomitant]
     Indication: OSTEOPOROSIS
     Route: 048
     Dates: start: 20020101
  9. FUROSEMIDE [Concomitant]
     Indication: HYPERTENSION
     Route: 048
     Dates: start: 20020101
  10. BISOPROLOL FUMARATE [Concomitant]
     Indication: HYPERTENSION
     Route: 048
     Dates: start: 20000101
  11. CALCIUM CARBONATE [Concomitant]
     Indication: OSTEOPOROSIS
     Route: 065
  12. COLECALCIFEROL [Concomitant]
     Indication: OSTEOPOROSIS
     Route: 065

REACTIONS (16)
  - ABDOMINAL PAIN [None]
  - ALANINE AMINOTRANSFERASE [None]
  - BLOOD BILIRUBIN INCREASED [None]
  - CHOLESTATIC LIVER INJURY [None]
  - DECREASED APPETITE [None]
  - DEHYDRATION [None]
  - DISORIENTATION [None]
  - DRUG INTERACTION [None]
  - GENERAL PHYSICAL HEALTH DETERIORATION [None]
  - HEPATITIS [None]
  - JAUNDICE [None]
  - SOMNOLENCE [None]
  - TRANSAMINASES INCREASED [None]
  - UNRESPONSIVE TO STIMULI [None]
  - URINARY TRACT INFECTION [None]
  - WEIGHT DECREASED [None]
